FAERS Safety Report 8574056-9 (Version None)
Quarter: 2012Q3

REPORT INFORMATION
  Report Type: 
  Country: None (occurrence: None)
  Receive Date: 20120806
  Receipt Date: 20110414
  Transmission Date: 20120928
  Serious: Yes (Death, Other)
  Sender: FDA-Public Use
  Company Number: DE-CELGENEUS-062-21880-12053554

PATIENT
  Age: 68 Year
  Sex: Male
  Weight: 86 kg

DRUGS (10)
  1. REVLIMID [Suspect]
     Route: 048
     Dates: start: 20090321, end: 20100611
  2. DEXAMETHASONE [Concomitant]
     Route: 065
     Dates: start: 20090414, end: 20100611
  3. BISPHOSPHONATES [Concomitant]
     Route: 065
  4. BISPHOSPHONATES [Concomitant]
     Route: 065
  5. DEXAMETHASONE [Concomitant]
     Indication: MULTIPLE MYELOMA
     Route: 065
     Dates: start: 20090117, end: 20090314
  6. DEXAMETHASONE [Concomitant]
     Route: 065
     Dates: start: 20090321
  7. LOW MOLECULAR HEPARINS [Concomitant]
     Indication: ANTICOAGULANT THERAPY
     Route: 065
  8. AMPHOTERICIN B [Concomitant]
     Route: 065
     Dates: start: 20090117
  9. REVLIMID [Suspect]
     Indication: MULTIPLE MYELOMA
     Route: 048
     Dates: start: 20090117, end: 20090314
  10. ALIZAPRID [Concomitant]
     Route: 065
     Dates: start: 20090117

REACTIONS (6)
  - THROMBOCYTOPENIA [None]
  - ANAEMIA [None]
  - BLOOD CREATININE INCREASED [None]
  - LEUKOPENIA [None]
  - DISEASE PROGRESSION [None]
  - BRONCHITIS [None]
